FAERS Safety Report 12155780 (Version 1)
Quarter: 2016Q1

REPORT INFORMATION
  Report Type: Not Available
  Country: US (occurrence: US)
  Receive Date: 20160307
  Receipt Date: 20160307
  Transmission Date: 20160526
  Serious: No
  Sender: FDA-Public Use
  Company Number: US-ANIPHARMA-2015-US-000204

PATIENT
  Age: 74 Year
  Sex: Male
  Weight: 68.04 kg

DRUGS (2)
  1. HYDROCORTISONE RECTAL SUSPENSION (NON-SPECIFC) [Suspect]
     Active Substance: HYDROCORTISONE
     Dosage: ONCE DAILY; ONCE EVERY OTHER DAY
     Route: 054
     Dates: start: 20150828, end: 20151005
  2. PROSCAR [Concomitant]
     Active Substance: FINASTERIDE

REACTIONS (5)
  - Swelling [Unknown]
  - Flushing [None]
  - Flushing [Unknown]
  - Weight increased [Unknown]
  - Joint swelling [None]

NARRATIVE: CASE EVENT DATE: 20150904
